FAERS Safety Report 9337877 (Version 1)
Quarter: 2013Q2

REPORT INFORMATION
  Report Type: Spontaneous
  Country: FR (occurrence: FR)
  Receive Date: 20130608
  Receipt Date: 20130608
  Transmission Date: 20140414
  Serious: Yes (Hospitalization, Other)
  Sender: FDA-Public Use
  Company Number: FR-PFIZER INC-2013172942

PATIENT
  Age: 68 Year
  Sex: Male

DRUGS (8)
  1. CORDARONE [Suspect]
     Dosage: 1 DF, DAILY
     Route: 048
  2. KARDEGIC [Interacting]
     Dosage: 1 DF, DAILY
     Route: 048
     Dates: end: 20130426
  3. PRADAXA [Interacting]
     Indication: ATRIAL FIBRILLATION
     Dosage: UNK
     Route: 065
     Dates: start: 2012, end: 20130426
  4. ALLOPURINOL [Concomitant]
  5. VALSARTAN [Concomitant]
  6. CRESTOR [Concomitant]
  7. JANUVIA [Concomitant]
  8. AMLOR [Concomitant]

REACTIONS (5)
  - Drug interaction [Recovered/Resolved]
  - Gastrointestinal haemorrhage [Recovered/Resolved]
  - Syncope [Recovered/Resolved]
  - Hypotension [Recovered/Resolved]
  - Renal failure [Recovered/Resolved]
